FAERS Safety Report 8202852-6 (Version None)
Quarter: 2012Q1

REPORT INFORMATION
  Report Type: 
  Country: None (occurrence: None)
  Receive Date: 20120312
  Receipt Date: 20120312
  Transmission Date: 20120608
  Serious: Yes (Life-Threatening, Other)
  Sender: FDA-Public Use
  Company Number: None

PATIENT
  Age: 60 Year
  Sex: Female
  Weight: 57.606 kg

DRUGS (2)
  1. BETASERON [Suspect]
     Indication: MULTIPLE SCLEROSIS
     Dosage: 1 SHOT
     Route: 058
     Dates: start: 20070201, end: 20100301
  2. BETASERON [Concomitant]
     Dosage: 1 SHOT
     Route: 058
     Dates: start: 20070201, end: 20100301

REACTIONS (4)
  - PALPITATIONS [None]
  - EXTRASYSTOLES [None]
  - DEPRESSION [None]
  - VENTRICULAR TACHYCARDIA [None]
